FAERS Safety Report 13069959 (Version 2)
Quarter: 2017Q1

REPORT INFORMATION
  Report Type: Spontaneous
  Country: BR (occurrence: BR)
  Receive Date: 20161228
  Receipt Date: 20170104
  Transmission Date: 20170428
  Serious: Yes (Other)
  Sender: FDA-Public Use
  Company Number: BR-PFIZER INC-2016600166

PATIENT
  Age: 68 Year
  Sex: Female
  Weight: 67 kg

DRUGS (5)
  1. FRONTAL [Suspect]
     Active Substance: ALPRAZOLAM
     Indication: SLEEP DISORDER
     Dosage: 1 MG, DAILY AT NIGHT
     Route: 048
  2. RIVOTRIL [Concomitant]
     Active Substance: CLONAZEPAM
  3. TRAMAL [Concomitant]
     Active Substance: TRAMADOL
  4. PURAN [Concomitant]
     Active Substance: LEVOTHYROXINE SODIUM
  5. VYTORIN [Concomitant]
     Active Substance: EZETIMIBE\SIMVASTATIN

REACTIONS (1)
  - Post procedural complication [Unknown]
